FAERS Safety Report 10185340 (Version 1)
Quarter: 2014Q2

REPORT INFORMATION
  Report Type: Spontaneous
  Country: US (occurrence: US)
  Receive Date: 20140521
  Receipt Date: 20140521
  Transmission Date: 20141212
  Serious: Yes (Hospitalization)
  Sender: FDA-Public Use
  Company Number: US-INCYTE CORPORATION-2014IN001326

PATIENT
  Age: 87 Year
  Sex: Male

DRUGS (6)
  1. JAKAFI [Suspect]
     Indication: MYELOFIBROSIS
     Dosage: 20 MG, BID
     Route: 048
     Dates: start: 201310
  2. PREDNISONE [Concomitant]
  3. CARVEDILOL [Concomitant]
  4. EXJADE [Concomitant]
  5. AMLODIPINE [Concomitant]
  6. ACYCLOVIR                          /00587301/ [Concomitant]

REACTIONS (1)
  - Herpes zoster [Not Recovered/Not Resolved]
